FAERS Safety Report 23791960 (Version 2)
Quarter: 2024Q2

REPORT INFORMATION
  Report Type: Spontaneous
  Country: US (occurrence: US)
  Receive Date: 20240429
  Receipt Date: 20240515
  Transmission Date: 20240715
  Serious: No
  Sender: FDA-Public Use
  Company Number: US-SANOFI-02024329

PATIENT
  Age: 74 Year
  Sex: Female
  Weight: 98.6 kg

DRUGS (10)
  1. SARCLISA [Suspect]
     Active Substance: ISATUXIMAB\ISATUXIMAB-IRFC
     Indication: Plasma cell myeloma
     Dosage: 960 MG, Q3W, 10 MG/KG (960 MG) WEEKLY 3 WEEKS ON /1 WEEK OFF
     Route: 042
     Dates: start: 20230920
  2. TYLENOL [Concomitant]
     Active Substance: ACETAMINOPHEN
     Dosage: UNK
  3. ZOFRAN [Concomitant]
     Active Substance: ONDANSETRON HYDROCHLORIDE
     Dosage: UNK
  4. BENADRYL [Concomitant]
     Active Substance: DIPHENHYDRAMINE HYDROCHLORIDE
     Dosage: UNK
  5. HYDROCORTISONE [Concomitant]
     Active Substance: HYDROCORTISONE
     Dosage: UNK
  6. POMALYST [Concomitant]
     Active Substance: POMALIDOMIDE
     Dosage: UNK
  7. DEXAMETHASONE [Concomitant]
     Active Substance: DEXAMETHASONE
     Dosage: 40 MG
     Route: 042
  8. ACETAMINOPHEN [Concomitant]
     Active Substance: ACETAMINOPHEN
     Dosage: 650MG
     Route: 048
  9. DIPHENHYDRAMINE [Concomitant]
     Active Substance: DIPHENHYDRAMINE
     Dosage: 50MG
     Route: 042
  10. FAMOTIDINE [Concomitant]
     Active Substance: FAMOTIDINE
     Dosage: 20MG
     Route: 042

REACTIONS (2)
  - Infusion related reaction [Not Recovered/Not Resolved]
  - Chills [Recovered/Resolved]
